FAERS Safety Report 8611153-3 (Version None)
Quarter: 2012Q3

REPORT INFORMATION
  Report Type: 
  Country: None (occurrence: None)
  Receive Date: 20120822
  Receipt Date: 20120810
  Transmission Date: 20120928
  Serious: Yes (Hospitalization)
  Sender: FDA-Public Use
  Company Number: US-ELI_LILLY_AND_COMPANY-US201208003604

PATIENT
  Age: 84 Year
  Sex: Male

DRUGS (3)
  1. SERTRALINE HYDROCHLORIDE [Suspect]
     Dosage: 200 MG, QD
  2. OLANZAPINE [Suspect]
     Dosage: 5 MG, UNK
  3. NORVASC [Concomitant]

REACTIONS (2)
  - OEDEMA [None]
  - DYSPNOEA [None]
